FAERS Safety Report 9286697 (Version 1)
Quarter: 2013Q2

REPORT INFORMATION
  Report Type: Spontaneous
  Country: GB (occurrence: GB)
  Receive Date: 20130513
  Receipt Date: 20130513
  Transmission Date: 20140414
  Serious: Yes (Other)
  Sender: FDA-Public Use
  Company Number: GB-PFIZER INC-2013144759

PATIENT
  Age: 89 Year
  Sex: Female
  Weight: 73 kg

DRUGS (3)
  1. DOXAZOSIN MESILATE [Suspect]
     Indication: HYPERTENSION
     Dosage: 4 MG, UNK
     Route: 048
     Dates: start: 20100501
  2. LERCANIDIPINE [Concomitant]
  3. ATENOLOL [Concomitant]

REACTIONS (1)
  - Urinary incontinence [Recovered/Resolved]
